FAERS Safety Report 16393267 (Version 3)
Quarter: 2019Q3

REPORT INFORMATION
  Report Type: Spontaneous
  Country: US (occurrence: US)
  Receive Date: 20190605
  Receipt Date: 20190920
  Transmission Date: 20191004
  Serious: Yes (Hospitalization, Other)
  Sender: FDA-Public Use
  Company Number: US-SA-2019SA151326

PATIENT
  Age: 65 Year
  Sex: Male
  Weight: 97 kg

DRUGS (6)
  1. METHOTREXATE. [Interacting]
     Active Substance: METHOTREXATE
     Dosage: 3.5 MG/M2 OVER 2.2 HOURS, INFUSION
     Route: 041
     Dates: start: 20161116, end: 20161116
  2. METHOTREXATE. [Interacting]
     Active Substance: METHOTREXATE
     Dosage: 3.5 MG/M2 OVER 2.2 HOURS, INFUSION
     Route: 041
     Dates: start: 20161129, end: 20161129
  3. PRIMAQUINE [Suspect]
     Active Substance: PRIMAQUINE PHOSPHATE
     Indication: PNEUMOCYSTIS JIROVECII PNEUMONIA
     Dosage: 30 MG, QD
     Route: 048
     Dates: start: 20161110, end: 20161117
  4. METHOTREXATE. [Interacting]
     Active Substance: METHOTREXATE
     Indication: MANTLE CELL LYMPHOMA
     Dosage: 3.5 MG/M2, OVER 2.2 HOURS, INFUSION
     Route: 041
     Dates: start: 20161013, end: 20161013
  5. LEUCOVORINE [Concomitant]
     Active Substance: LEUCOVORIN
     Indication: MANTLE CELL LYMPHOMA
     Dosage: UNK
     Dates: start: 20161013
  6. RITUXIMAB. [Concomitant]
     Active Substance: RITUXIMAB
     Indication: MANTLE CELL LYMPHOMA
     Dosage: UNK
     Dates: start: 20161013

REACTIONS (4)
  - Off label use [Unknown]
  - Pneumocystis jirovecii pneumonia [Unknown]
  - Drug clearance increased [Recovered/Resolved]
  - Drug interaction [Unknown]

NARRATIVE: CASE EVENT DATE: 20161105
